FAERS Safety Report 8508079-2 (Version None)
Quarter: 2012Q3

REPORT INFORMATION
  Report Type: 
  Country: None (occurrence: None)
  Receive Date: 20120709
  Receipt Date: 20120709
  Transmission Date: 20120928
  Serious: No
  Sender: FDA-Public Use
  Company Number: None

PATIENT

DRUGS (1)
  1. IOHEXOL IOHEXOL [Suspect]

REACTIONS (8)
  - NAUSEA [None]
  - GRAND MAL CONVULSION [None]
  - COMA [None]
  - MEDICATION ERROR [None]
  - MUSCLE SPASMS [None]
  - OVERDOSE [None]
  - PAIN [None]
  - DELIRIUM [None]
